FAERS Safety Report 9628913 (Version 1)
Quarter: 2013Q4

REPORT INFORMATION
  Report Type: Report from Study
  Country: ES (occurrence: ES)
  Receive Date: 20131017
  Receipt Date: 20131017
  Transmission Date: 20140711
  Serious: No
  Sender: FDA-Public Use
  Company Number: ES-JNJFOC-20131008126

PATIENT
  Sex: 0

DRUGS (1)
  1. STELARA [Suspect]
     Indication: PSORIASIS
     Dosage: MONTHLY (4 WEEKS) FOR TWO MONTHS AND THEN QUARTERLY (12 WEEKS) SCHEDULE
     Route: 058

REACTIONS (1)
  - Antinuclear antibody positive [Unknown]
